FAERS Safety Report 26147054 (Version 1)
Quarter: 2025Q4

REPORT INFORMATION
  Report Type: Spontaneous
  Country: US (occurrence: US)
  Receive Date: 20251211
  Receipt Date: 20251211
  Transmission Date: 20260118
  Serious: Yes (Other)
  Sender: INTERCHEM
  Company Number: US-HQ SPECIALTY-US-2025INT000090

PATIENT
  Age: 17 Year
  Sex: Female

DRUGS (7)
  1. CISPLATIN [Suspect]
     Active Substance: CISPLATIN
     Indication: Pancreatoblastoma
     Dosage: UNK 5 CYCLE
     Route: 065
  2. FLUOROURACIL [Concomitant]
     Active Substance: FLUOROURACIL
     Indication: Pancreatoblastoma
     Dosage: UNK 5 CYCLE
     Route: 065
  3. VINCRISTINE [Concomitant]
     Active Substance: VINCRISTINE
     Indication: Pancreatoblastoma
     Dosage: UNK 5 CYCLE
     Route: 065
  4. DOXORUBICIN [Concomitant]
     Active Substance: DOXORUBICIN
     Indication: Pancreatoblastoma
     Dosage: UNK 5 CYCLE
     Route: 065
  5. IFOSFAMIDE [Concomitant]
     Active Substance: IFOSFAMIDE
     Indication: Pancreatoblastoma
     Dosage: UNK, ADDED IN LAST CYCLE
     Route: 065
  6. CARBOPLATIN [Concomitant]
     Active Substance: CARBOPLATIN
     Indication: Pancreatoblastoma
     Dosage: UNK, ADDED IN LAST CYCLE
     Route: 065
  7. ETOPOSIDE [Concomitant]
     Active Substance: ETOPOSIDE
     Indication: Pancreatoblastoma
     Dosage: UNK, ADDED IN LAST CYCLE
     Route: 065

REACTIONS (2)
  - Fanconi syndrome [Unknown]
  - Product use in unapproved indication [Unknown]
